FAERS Safety Report 14067102 (Version 1)
Quarter: 2017Q4

REPORT INFORMATION
  Report Type: Spontaneous
  Country: RO (occurrence: RO)
  Receive Date: 20171010
  Receipt Date: 20171010
  Transmission Date: 20180321
  Serious: Yes (Other)
  Sender: FDA-Public Use
  Company Number: RO-SUN PHARMACEUTICAL INDUSTRIES LTD-2017R1-151796

PATIENT
  Age: 39 Year
  Sex: Female

DRUGS (3)
  1. DOXYCYCLINE. [Suspect]
     Active Substance: DOXYCYCLINE
     Indication: BURKHOLDERIA CEPACIA COMPLEX INFECTION
     Dosage: UNK
     Route: 065
  2. TRIMETHOPRIM. [Suspect]
     Active Substance: TRIMETHOPRIM
     Indication: BURKHOLDERIA CEPACIA COMPLEX INFECTION
     Dosage: UNK
     Route: 065
  3. MEROPENEM. [Suspect]
     Active Substance: MEROPENEM
     Indication: BURKHOLDERIA CEPACIA COMPLEX INFECTION
     Dosage: 6 G, DAILY
     Route: 065

REACTIONS (1)
  - Agranulocytosis [Unknown]
